FAERS Safety Report 22151210 (Version 3)
Quarter: 2023Q2

REPORT INFORMATION
  Report Type: Report from Study
  Country: RU (occurrence: RU)
  Receive Date: 20230329
  Receipt Date: 20230421
  Transmission Date: 20230721
  Serious: Yes (Life-Threatening, Hospitalization)
  Sender: FDA-Public Use
  Company Number: RU-002147023-NVSC2023RU072060

PATIENT
  Age: 69 Year
  Sex: Male

DRUGS (6)
  1. DABRAFENIB [Suspect]
     Active Substance: DABRAFENIB
     Indication: Metastatic malignant melanoma
     Dosage: 300 MG, QD
     Route: 048
     Dates: start: 20220805
  2. DABRAFENIB [Suspect]
     Active Substance: DABRAFENIB
     Dosage: 75 MG, BID ( 2 TIMES PER DAY)
     Route: 048
     Dates: end: 20221015
  3. DABRAFENIB [Suspect]
     Active Substance: DABRAFENIB
     Dosage: 150 MG, QD
     Route: 048
  4. MEKINIST [Suspect]
     Active Substance: TRAMETINIB DIMETHYL SULFOXIDE
     Indication: Metastatic malignant melanoma
     Dosage: 2 MG, QD
     Route: 048
     Dates: start: 20220805
  5. MEKINIST [Suspect]
     Active Substance: TRAMETINIB DIMETHYL SULFOXIDE
     Dosage: 2 MG, QD
     Route: 048
     Dates: start: 20221010, end: 20221015
  6. MEKINIST [Suspect]
     Active Substance: TRAMETINIB DIMETHYL SULFOXIDE
     Dosage: 2 MG, QD
     Route: 048

REACTIONS (9)
  - Epilepsy [Recovered/Resolved]
  - Hyperthermia [Recovered/Resolved]
  - Brain oedema [Recovered/Resolved]
  - Cerebrovascular accident [Recovered/Resolved]
  - Hyperthermia [Recovered/Resolved]
  - Renal failure [Recovered/Resolved]
  - Body temperature increased [Unknown]
  - Infection [Unknown]
  - Hyperthermia [Recovered/Resolved]

NARRATIVE: CASE EVENT DATE: 20220806
